FAERS Safety Report 5025780-6 (Version None)
Quarter: 2006Q2

REPORT INFORMATION
  Report Type: 
  Country: None (occurrence: None)
  Receive Date: 20060427
  Receipt Date: 20050518
  Transmission Date: 20061013
  Serious: Yes (Disabling, Other)
  Sender: FDA-Public Use
  Company Number: 2005046985

PATIENT
  Age: 38 Year
  Sex: Male
  Weight: 72.5755 kg

DRUGS (1)
  1. AZITHROMYCIN [Suspect]
     Indication: UPPER RESPIRATORY TRACT INFECTION
     Dosage: 250 MG (250 MG, DAILY INTERVAL: EVERY DAY), ORAL
     Route: 048
     Dates: start: 20050226, end: 20050302

REACTIONS (2)
  - DEAFNESS NEUROSENSORY [None]
  - DEAFNESS UNILATERAL [None]
